FAERS Safety Report 5217907-8 (Version None)
Quarter: 2007Q1

REPORT INFORMATION
  Report Type: 
  Country: None (occurrence: None)
  Receive Date: 20061130
  Receipt Date: 20060731
  Transmission Date: 20070707
  Serious: Yes (Hospitalization)
  Sender: FDA-Public Use
  Company Number: US200608000188

PATIENT
  Sex: Female

DRUGS (2)
  1. ZYPREXA [Suspect]
     Indication: SCHIZOPHRENIA
     Dosage: 15 MG, DAILY 1/D, 20 MG, 2/D
  2. GEODON [Concomitant]

REACTIONS (5)
  - BLOOD GLUCOSE ABNORMAL [None]
  - LIPIDS INCREASED [None]
  - PRESCRIBED OVERDOSE [None]
  - SCHIZOPHRENIA [None]
  - WEIGHT INCREASED [None]
